FAERS Safety Report 18619410 (Version 1)
Quarter: 2020Q4

REPORT INFORMATION
  Report Type: Spontaneous
  Country: US (occurrence: US)
  Receive Date: 20201215
  Receipt Date: 20201215
  Transmission Date: 20210114
  Serious: No
  Sender: FDA-Public Use
  Company Number: US-PERRIGO-20US017712

PATIENT

DRUGS (1)
  1. GUAIFENESIN-DEXTROMETHORPHAN HYDROBROMIDE [Suspect]
     Active Substance: DEXTROMETHORPHAN HYDROBROMIDE\GUAIFENESIN
     Indication: NASAL CONGESTION
     Dosage: UNK
     Route: 048
     Dates: start: 202012

REACTIONS (2)
  - Drug effective for unapproved indication [Unknown]
  - Confusional state [Unknown]

NARRATIVE: CASE EVENT DATE: 202012
